FAERS Safety Report 26169913 (Version 1)
Quarter: 2025Q4

REPORT INFORMATION
  Report Type: Spontaneous
  Country: EU (occurrence: EU)
  Receive Date: 20251217
  Receipt Date: 20251217
  Transmission Date: 20260118
  Serious: Yes (Death, Life-Threatening, Hospitalization)
  Sender: MERCK SHARP & DOHME LLC
  Company Number: EU-009507513-2360315

PATIENT
  Age: 67 Year
  Sex: Female

DRUGS (1)
  1. PEMBROLIZUMAB [Suspect]
     Active Substance: PEMBROLIZUMAB
     Indication: Triple negative breast cancer
     Dosage: FIRST ADMINISTRATION OF KEYTRUDA ON 18-AUG, THE LAST ADMINISTRATION ON 18-NOV

REACTIONS (2)
  - Sepsis [Fatal]
  - Immune-mediated enterocolitis [Unknown]
